FAERS Safety Report 7348254-6 (Version None)
Quarter: 2011Q1

REPORT INFORMATION
  Report Type: 
  Country: None (occurrence: None)
  Receive Date: 20110311
  Receipt Date: 20110301
  Transmission Date: 20110831
  Serious: Yes (Life-Threatening)
  Sender: FDA-Public Use
  Company Number: ES-PFIZER INC-2011023796

PATIENT
  Age: 76 Year
  Sex: Male
  Weight: 60 kg

DRUGS (11)
  1. VANCOMYCIN [Concomitant]
     Dosage: 1 G, 2X/DAY
     Dates: start: 20100215, end: 20100302
  2. OMEPRAZOLE [Concomitant]
     Dosage: 20 MG, UNK
     Dates: start: 20091226, end: 20100312
  3. ENOXAPARIN [Concomitant]
     Dosage: 40 MG, UNK
     Dates: start: 20091226, end: 20100312
  4. URBASON [Concomitant]
     Dosage: 80 MG, UNK
     Dates: start: 20100210, end: 20100210
  5. FUROSEMIDE [Concomitant]
     Dosage: UNK
     Dates: start: 20091212, end: 20100302
  6. ACETYLCYSTEINE [Concomitant]
     Dosage: 200 MG, 3X/DAY
     Dates: start: 20100202, end: 20100303
  7. TIGECYCLINE [Suspect]
     Indication: ABDOMINAL INFECTION
     Dosage: 50 MG, 2X/DAY
     Dates: start: 20100209, end: 20100223
  8. AMLODIPINE [Concomitant]
     Dosage: 5 MG, 1X/DAY
     Dates: start: 20100131, end: 20100224
  9. ACETAMINOPHEN [Concomitant]
     Dosage: 1 G, 3X/DAY
     Dates: start: 20091226, end: 20100305
  10. ENALAPRIL [Concomitant]
     Dosage: UNK
     Dates: start: 20100131, end: 20100225
  11. POLARAMINE [Concomitant]
     Dosage: UNK
     Dates: start: 20100210, end: 20100210

REACTIONS (1)
  - CARDIO-RESPIRATORY ARREST [None]
